FAERS Safety Report 4710542-7 (Version None)
Quarter: 2005Q3

REPORT INFORMATION
  Report Type: 
  Country: None (occurrence: None)
  Receive Date: 20050707
  Receipt Date: 20050627
  Transmission Date: 20060218
  Serious: Yes (Disabling)
  Sender: FDA-Public Use
  Company Number: 2005089916

PATIENT
  Age: 71 Year
  Sex: Male
  Weight: 78 kg

DRUGS (1)
  1. PHENYTOIN [Suspect]
     Indication: EPILEPSY
     Dosage: 300 MG , ORAL
     Route: 048
     Dates: start: 19860101, end: 20040101

REACTIONS (2)
  - BLOOD FOLATE DECREASED [None]
  - NEUROPATHY PERIPHERAL [None]
